FAERS Safety Report 16046575 (Version 1)
Quarter: 2019Q1

REPORT INFORMATION
  Report Type: Spontaneous
  Country: US (occurrence: US)
  Receive Date: 20190207
  Receipt Date: 20190207
  Transmission Date: 20190418
  Serious: No
  Sender: FDA-Public Use
  Company Number: None

PATIENT
  Age: 63 Year
  Sex: Female

DRUGS (1)
  1. OCTREOTIDE 5ML MDV 200MCG/ML TEVA PARENTERAL MEDICINES [Suspect]
     Active Substance: OCTREOTIDE
     Indication: CARCINOID SYNDROME
     Dosage: 300MCG 3 TO 4 TIMES A DAY?
     Route: 058
     Dates: start: 20150722

REACTIONS (5)
  - Contusion [None]
  - Pain [None]
  - Injection site reaction [None]
  - Fall [None]
  - Hepatic steatosis [None]

NARRATIVE: CASE EVENT DATE: 20190101
